FAERS Safety Report 23773826 (Version 2)
Quarter: 2025Q2

REPORT INFORMATION
  Report Type: Spontaneous
  Country: US (occurrence: US)
  Receive Date: 20240423
  Receipt Date: 20250622
  Transmission Date: 20250717
  Serious: No
  Sender: SANOFI AVENTIS
  Company Number: US-SA-SAC20240419000119

PATIENT
  Age: 5 Year
  Sex: Female
  Weight: 23.13 kg

DRUGS (1)
  1. DUPIXENT [Suspect]
     Active Substance: DUPILUMAB
     Indication: Eosinophilic oesophagitis
     Dosage: 200 MG, QOW
     Route: 058
     Dates: start: 20240301

REACTIONS (1)
  - Rash [Recovered/Resolved]
